FAERS Safety Report 4317346-8 (Version None)
Quarter: 2004Q1

REPORT INFORMATION
  Report Type: 
  Country: None (occurrence: None)
  Receive Date: 20040305
  Receipt Date: 20040202
  Transmission Date: 20041129
  Serious: No
  Sender: FDA-Public Use
  Company Number: US-SHR-04-020967

PATIENT
  Sex: Female

DRUGS (1)
  1. CAMPATH [Suspect]

REACTIONS (1)
  - HYPOAESTHESIA [None]
